FAERS Safety Report 12585075 (Version 1)
Quarter: 2016Q3

REPORT INFORMATION
  Report Type: Spontaneous
  Country: US (occurrence: US)
  Receive Date: 20160723
  Receipt Date: 20160723
  Transmission Date: 20161109
  Serious: No
  Sender: FDA-Public Use
  Company Number: PHEH2016US018307

PATIENT
  Sex: Male

DRUGS (2)
  1. DAINAZOL [Suspect]
     Active Substance: DANAZOL
     Indication: PLATELET COUNT DECREASED
     Dosage: 200 MG, TID
     Route: 065
  2. PROMACTA [Suspect]
     Active Substance: ELTROMBOPAG OLAMINE
     Indication: THROMBOCYTOPENIA
     Dosage: 50 MG, QD
     Route: 048

REACTIONS (2)
  - Blue toe syndrome [Recovered/Resolved]
  - Platelet count increased [Recovered/Resolved]
